FAERS Safety Report 9470091 (Version 1)
Quarter: 2013Q3

REPORT INFORMATION
  Report Type: Spontaneous
  Country: US (occurrence: None)
  Receive Date: 20130820
  Receipt Date: 20130820
  Transmission Date: 20140515
  Serious: Yes (Other)
  Sender: FDA-Public Use
  Company Number: None

PATIENT
  Age: 21 Year
  Sex: Female

DRUGS (2)
  1. IRON SUCROSE [Suspect]
     Indication: ANAEMIA
     Route: 042
     Dates: start: 20130813, end: 20130813
  2. INFLIXIMAB [Concomitant]

REACTIONS (7)
  - Dizziness [None]
  - Local swelling [None]
  - Local swelling [None]
  - Hypoaesthesia [None]
  - Hypoaesthesia [None]
  - Painful respiration [None]
  - Presyncope [None]
